FAERS Safety Report 7413734-1 (Version None)
Quarter: 2011Q2

REPORT INFORMATION
  Report Type: 
  Country: None (occurrence: None)
  Receive Date: 20110413
  Receipt Date: 20110331
  Transmission Date: 20111010
  Serious: Yes (Hospitalization)
  Sender: FDA-Public Use
  Company Number: JP-BAYER-2010-000046

PATIENT
  Age: 78 Year
  Sex: Male
  Weight: 61 kg

DRUGS (9)
  1. BLOPRESS [Concomitant]
     Indication: HYPERTENSION
     Dosage: 12 MG, QD
     Route: 048
  2. KAMAG G [Concomitant]
     Indication: CONSTIPATION
     Dosage: DAILY DOSE 3 G
     Route: 048
  3. SUNRYTHM [Concomitant]
     Indication: ATRIAL FIBRILLATION
     Dosage: 2.5 MG, QD
     Route: 048
  4. SIGMART [Concomitant]
     Indication: ANGINA PECTORIS
     Dosage: UNK
     Route: 048
  5. NORVASC [Concomitant]
     Indication: HYPERTENSION
     Dosage: 5 MG, QD
     Route: 048
  6. FLUITRAN [Concomitant]
     Indication: HYPERTENSION
     Dosage: 1 MG, QD
     Route: 048
  7. FERROUS CITRATE [Concomitant]
     Indication: IRON DEFICIENCY ANAEMIA
     Dosage: 50 MG, QD
     Route: 048
  8. ASPIRIN [Suspect]
     Indication: MYOCARDIAL INFARCTION
     Dosage: 100 MG, QD
     Route: 048
     Dates: start: 20090316, end: 20100410
  9. GASTER D [Concomitant]
     Indication: REFLUX OESOPHAGITIS
     Dosage: 20 MG, QD
     Route: 048
     Dates: start: 20050308, end: 20100410

REACTIONS (2)
  - OESOPHAGEAL ULCER HAEMORRHAGE [None]
  - HAEMATEMESIS [None]
